FAERS Safety Report 6540600-6 (Version None)
Quarter: 2010Q1

REPORT INFORMATION
  Report Type: 
  Country: None (occurrence: None)
  Receive Date: 20100118
  Receipt Date: 20100112
  Transmission Date: 20100710
  Serious: Yes (Hospitalization)
  Sender: FDA-Public Use
  Company Number: DE-ELI_LILLY_AND_COMPANY-DE200911000082

PATIENT
  Sex: Female

DRUGS (11)
  1. PEMETREXED [Suspect]
     Indication: NON-SMALL CELL LUNG CANCER
     Dosage: 500 MG/M2, ON D1 EVERY 21 DAYS
     Route: 042
     Dates: start: 20090506, end: 20090506
  2. PEMETREXED [Suspect]
     Dosage: 500 MG/M2, ON D1 EVERY 21 DAYS
     Route: 042
     Dates: start: 20090603, end: 20090603
  3. PEMETREXED [Suspect]
     Dosage: 500 MG/M2, ON D1 EVERY 21 DAYS
     Route: 042
     Dates: start: 20090624, end: 20090624
  4. PEMETREXED [Suspect]
     Dosage: 500 MG/M2, ON D1 EVERY 21 DAYS
     Route: 042
     Dates: start: 20090722, end: 20090722
  5. CISPLATIN [Suspect]
     Indication: NON-SMALL CELL LUNG CANCER
     Dosage: 75 MG/M2, ON D1 EVERY 21 DAYS
     Route: 042
     Dates: start: 20090506, end: 20090506
  6. CISPLATIN [Suspect]
     Dosage: 75 MG/M2, ON D1 EVERY 21 DAYS
     Route: 042
     Dates: start: 20090603, end: 20090603
  7. CISPLATIN [Suspect]
     Dosage: 75 MG/M2, ON D1 EVERY 21 DAYS
     Route: 042
     Dates: start: 20090624, end: 20090624
  8. CISPLATIN [Suspect]
     Dosage: 75 MG/M2, ON D1 EVERY 21 DAYS
     Route: 042
     Dates: start: 20090722, end: 20090722
  9. FOLIC ACID [Concomitant]
     Indication: PROPHYLAXIS
     Dates: start: 20090501
  10. VIT B12 [Concomitant]
     Indication: PROPHYLAXIS
     Dates: start: 20090721, end: 20090721
  11. DEXAMETHASONE [Concomitant]
     Indication: PROPHYLAXIS
     Dates: start: 20090721, end: 20090723

REACTIONS (1)
  - ANAEMIA [None]
